FAERS Safety Report 8646154 (Version 2)
Quarter: 2012Q4

REPORT INFORMATION
  Report Type: 
  Country: US (occurrence: US)
  Receive Date: 20120702
  Receipt Date: 20121112
  Transmission Date: 20130627
  Serious: Yes (Hospitalization)
  Sender: FDA-Public Use
  Company Number: US-TEVA-345156USA

PATIENT
  Age: 58 Year
  Sex: Female
  Weight: 104.42 kg

DRUGS (3)
  1. PROVIGIL [Suspect]
     Indication: MULTIPLE SCLEROSIS
     Dosage: 400 Milligram Daily;
     Route: 048
     Dates: start: 20120428, end: 201206
  2. PROVIGIL [Suspect]
     Indication: FATIGUE
     Dosage: 200 Milligram Daily;
     Route: 048
     Dates: end: 20120427
  3. NATALIZUMAB [Concomitant]
     Indication: MULTIPLE SCLEROSIS

REACTIONS (3)
  - Deep vein thrombosis [Recovered/Resolved]
  - Incorrect dose administered [Unknown]
  - Off label use [Unknown]
